FAERS Safety Report 17159465 (Version 1)
Quarter: 2019Q4

REPORT INFORMATION
  Report Type: Spontaneous
  Country: US (occurrence: US)
  Receive Date: 20191216
  Receipt Date: 20191216
  Transmission Date: 20200122
  Serious: No
  Sender: FDA-Public Use
  Company Number: US-GLAXOSMITHKLINE-US2019AMR223900

PATIENT

DRUGS (1)
  1. MALARONE [Suspect]
     Active Substance: ATOVAQUONE\PROGUANIL HYDROCHLORIDE
     Indication: MALARIA
     Dosage: UNK
     Route: 065

REACTIONS (4)
  - Vomiting [Unknown]
  - Ill-defined disorder [Unknown]
  - Abdominal pain [Unknown]
  - Diarrhoea [Unknown]
